FAERS Safety Report 7620391-8 (Version None)
Quarter: 2011Q3

REPORT INFORMATION
  Report Type: 
  Country: None (occurrence: None)
  Receive Date: 20110718
  Receipt Date: 20110718
  Transmission Date: 20111222
  Serious: Yes (Other)
  Sender: FDA-Public Use
  Company Number: None

PATIENT
  Age: 40 Year
  Sex: Male
  Weight: 83.914 kg

DRUGS (7)
  1. EMEND [Suspect]
     Indication: PROPHYLAXIS OF NAUSEA AND VOMITING
     Dosage: 150 MG IN 150 ML
     Route: 041
     Dates: start: 20110617, end: 20110617
  2. ADRIAMYCIN PFS [Interacting]
     Route: 040
  3. ATIVAN [Interacting]
     Route: 040
  4. ALOXI [Interacting]
     Route: 040
  5. DECADRON [Interacting]
     Route: 040
  6. CYTOXAN [Interacting]
     Route: 040
  7. EMEND [Interacting]
     Route: 041

REACTIONS (4)
  - MUSCLE TIGHTNESS [None]
  - LIMB DISCOMFORT [None]
  - INFUSION SITE ERYTHEMA [None]
  - MIDDLE INSOMNIA [None]
